FAERS Safety Report 21119032 (Version 1)
Quarter: 2022Q3

REPORT INFORMATION
  Report Type: Spontaneous
  Country: US (occurrence: None)
  Receive Date: 20220721
  Receipt Date: 20220721
  Transmission Date: 20221027
  Serious: Yes (Other)
  Sender: FDA-Public Use
  Company Number: None

PATIENT
  Age: 50 Year
  Sex: Male

DRUGS (1)
  1. SUNITINIB [Suspect]
     Active Substance: SUNITINIB
     Dosage: 37.5 MG DAILY ORAL ??DATES OF USE: 10/2121  - ^FEW WEEKS AGO^
     Route: 048
     Dates: start: 202110

REACTIONS (1)
  - Disease progression [None]

NARRATIVE: CASE EVENT DATE: 20220721
